FAERS Safety Report 23228399 (Version 1)
Quarter: 2023Q4

REPORT INFORMATION
  Report Type: Other
  Country: None (occurrence: PT)
  Receive Date: 20231125
  Receipt Date: 20231125
  Transmission Date: 20240109
  Serious: Yes (Death)
  Sender: FDA-Public Use
  Company Number: PT-AUROBINDO-AUR-APL-2023-04149

PATIENT
  Age: 79 Year
  Sex: Female

DRUGS (5)
  1. OXYGEN [Suspect]
     Active Substance: OXYGEN
     Indication: Pneumonitis
  2. MYCOPHENOLATE MOFETIL [Suspect]
     Active Substance: MYCOPHENOLATE MOFETIL
     Route: 050
  3. FLUCONAZOLE [Suspect]
     Active Substance: FLUCONAZOLE
  4. PREDNISOLONE [Suspect]
     Active Substance: PREDNISOLONE
  5. AMPHOTERICIN B [Concomitant]
     Active Substance: AMPHOTERICIN B

REACTIONS (2)
  - Meningitis cryptococcal [Fatal]
  - Disease progression [Fatal]
